FAERS Safety Report 8824297 (Version 1)
Quarter: 2012Q4

REPORT INFORMATION
  Report Type: 
  Country: AR (occurrence: AR)
  Receive Date: 20121004
  Receipt Date: 20121004
  Transmission Date: 20130627
  Serious: Yes (Other)
  Sender: FDA-Public Use
  Company Number: AR-AMGEN-ARGSP2012062098

PATIENT
  Age: 68 Year
  Sex: Female

DRUGS (6)
  1. ENBREL [Suspect]
     Indication: PSORIATIC ARTHROPATHY
     Dosage: 50 mg, weekly
     Route: 058
     Dates: start: 20100416, end: 201012
  2. ANALGESICS [Suspect]
     Dosage: UNK
  3. METHOTREXATE [Concomitant]
     Dosage: UNK UNK, UNK
  4. DICLOFENAC [Concomitant]
     Dosage: UNK
  5. SERTRALINE [Concomitant]
     Dosage: UNK
  6. TENORETIC [Concomitant]
     Dosage: UNK

REACTIONS (2)
  - Urticaria [Unknown]
  - Pneumonia [Recovered/Resolved]
